FAERS Safety Report 6088426-4 (Version None)
Quarter: 2009Q1

REPORT INFORMATION
  Report Type: 
  Country: None (occurrence: None)
  Receive Date: 20090218
  Receipt Date: 20090218
  Transmission Date: 20090719
  Serious: Yes (Other)
  Sender: FDA-Public Use
  Company Number: None

PATIENT
  Age: 35 Year
  Sex: Female
  Weight: 54.4316 kg

DRUGS (1)
  1. OMNIPAQUE 350 [Suspect]
     Indication: BREAST CANCER
     Dosage: 100CC 1 IV
     Route: 042
     Dates: start: 20090217

REACTIONS (3)
  - DYSPNOEA [None]
  - NAUSEA [None]
  - TREMOR [None]
